FAERS Safety Report 12825441 (Version 1)
Quarter: 2016Q4

REPORT INFORMATION
  Report Type: Spontaneous
  Country: US (occurrence: US)
  Receive Date: 20161007
  Receipt Date: 20161007
  Transmission Date: 20170207
  Serious: Yes (Hospitalization, Other)
  Sender: FDA-Public Use
  Company Number: None

PATIENT
  Age: 71 Year
  Sex: Female
  Weight: 63.5 kg

DRUGS (8)
  1. ACYCLOVIR. [Concomitant]
     Active Substance: ACYCLOVIR
  2. FISH OIL [Concomitant]
     Active Substance: FISH OIL
  3. TYLENOL [Concomitant]
     Active Substance: ACETAMINOPHEN
  4. VITAMIN D [Concomitant]
     Active Substance: CHOLECALCIFEROL
  5. IBUPROFEN. [Concomitant]
     Active Substance: IBUPROFEN
  6. ALENDRONATE [Suspect]
     Active Substance: ALENDRONATE SODIUM
  7. SIMVASTATIN. [Concomitant]
     Active Substance: SIMVASTATIN
  8. CALCIUM [Concomitant]
     Active Substance: CALCIUM

REACTIONS (7)
  - Weight decreased [None]
  - Fall [None]
  - Haemorrhage [None]
  - Pathological fracture [None]
  - Visual acuity reduced [None]
  - Mobility decreased [None]
  - Pain [None]

NARRATIVE: CASE EVENT DATE: 20160601
